FAERS Safety Report 16596190 (Version 1)
Quarter: 2019Q3

REPORT INFORMATION
  Report Type: Spontaneous
  Country: US (occurrence: US)
  Receive Date: 20190719
  Receipt Date: 20190719
  Transmission Date: 20191004
  Serious: Yes (Life-Threatening, Hospitalization, Other)
  Sender: FDA-Public Use
  Company Number: US-IBIGEN-2019.06886

PATIENT
  Age: 5 Decade

DRUGS (4)
  1. AMIKACIN. [Suspect]
     Active Substance: AMIKACIN
     Indication: ESCHERICHIA INFECTION
  2. CIPROFLOXACIN. [Suspect]
     Active Substance: CIPROFLOXACIN
     Indication: SERRATIA INFECTION
     Route: 048
  3. VANCOMYCIN [Concomitant]
     Active Substance: VANCOMYCIN
     Indication: SERRATIA INFECTION
  4. PIPERACILLIN AND TAZOBACTAM [Suspect]
     Active Substance: PIPERACILLIN SODIUM\TAZOBACTAM SODIUM
     Indication: SERRATIA INFECTION
     Route: 042

REACTIONS (3)
  - Drug ineffective [Not Recovered/Not Resolved]
  - Drug resistance [Not Recovered/Not Resolved]
  - Renal impairment [Unknown]
